FAERS Safety Report 24830825 (Version 1)
Quarter: 2025Q1

REPORT INFORMATION
  Report Type: Spontaneous
  Country: FR (occurrence: FR)
  Receive Date: 20250110
  Receipt Date: 20250110
  Transmission Date: 20250409
  Serious: Yes (Hospitalization, Other)
  Sender: CHEPLAPHARM
  Company Number: None

PATIENT
  Age: 14 Year
  Sex: Female
  Weight: 30.6 kg

DRUGS (12)
  1. OLANZAPINE [Suspect]
     Active Substance: OLANZAPINE
     Indication: Toxicity to various agents
     Dosage: 5 MILLIGRAMS PER TABLET: 1 TABLET IN THE EVENING?DAILY DOSE: 1 DOSAGE FORM
     Route: 048
     Dates: start: 20240905, end: 20240905
  2. CLONAZEPAM [Suspect]
     Active Substance: CLONAZEPAM
     Route: 042
  3. FLUOXETINE [Suspect]
     Active Substance: FLUOXETINE HYDROCHLORIDE
  4. ACETAMINOPHEN [Suspect]
     Active Substance: ACETAMINOPHEN
  5. HERBALS [Suspect]
     Active Substance: HERBALS
     Dosage: DAILY DOSE: 20 DROP
  6. PROBIOTICS NOS [Suspect]
     Active Substance: PROBIOTICS NOS
  7. CHOLECALCIFEROL [Suspect]
     Active Substance: CHOLECALCIFEROL
     Dosage: 50,000 UI EVERY SIX WEEKS
  8. POLYETHYLENE GLYCOLS [Suspect]
     Active Substance: POLYETHYLENE GLYCOLS
  9. RISPERDAL [Concomitant]
     Active Substance: RISPERIDONE
  10. ATARAX [Concomitant]
     Active Substance: HYDROXYZINE HYDROCHLORIDE
  11. CYAMEMAZINE [Concomitant]
     Active Substance: CYAMEMAZINE
  12. SERTRALINE [Concomitant]
     Active Substance: SERTRALINE HYDROCHLORIDE

REACTIONS (11)
  - Neuroleptic malignant syndrome [Recovered/Resolved]
  - Leukopenia [Unknown]
  - Lymphopenia [Unknown]
  - Thrombocytopenia [Unknown]
  - Toxicity to various agents [Recovered/Resolved]
  - Renal failure [Unknown]
  - Somnolence [Unknown]
  - Weight decreased [Unknown]
  - Bradycardia [Unknown]
  - Miosis [Unknown]
  - Tachycardia [Unknown]

NARRATIVE: CASE EVENT DATE: 20240905
